FAERS Safety Report 9234827 (Version 2)
Quarter: 2013Q2

REPORT INFORMATION
  Report Type: Report from Study
  Country: IT (occurrence: IT)
  Receive Date: 20130416
  Receipt Date: 20130507
  Transmission Date: 20140414
  Serious: Yes (Hospitalization)
  Sender: FDA-Public Use
  Company Number: IT-TEVA-398573USA

PATIENT
  Age: 73 Year
  Sex: Male
  Weight: 91 kg

DRUGS (12)
  1. TREANDA [Suspect]
     Route: 042
  2. OFATUMUMAB [Suspect]
  3. PARACETAMOL [Concomitant]
  4. CHLORPHENIRAMINE [Concomitant]
  5. PREDNISOLONE [Concomitant]
  6. ALLOPURINOL [Concomitant]
  7. METOCLOPRAMIDE [Concomitant]
  8. ACICLOVIR [Concomitant]
  9. G-CSF [Concomitant]
  10. CLARITHROMYCIN [Concomitant]
     Dosage: 1000 MILLIGRAM DAILY;
     Route: 048
     Dates: start: 20130402
  11. ENOXAPARIN [Concomitant]
     Dosage: 150 MILLIGRAM DAILY;
     Route: 058
  12. LATANOPROST [Concomitant]
     Dosage: .1 PERCENT DAILY;

REACTIONS (2)
  - Lung consolidation [Not Recovered/Not Resolved]
  - Lung infection [Not Recovered/Not Resolved]
